FAERS Safety Report 5801900-8 (Version None)
Quarter: 2008Q3

REPORT INFORMATION
  Report Type: 
  Country: None (occurrence: None)
  Receive Date: 20080707
  Receipt Date: 20080702
  Transmission Date: 20090109
  Serious: Yes (Other)
  Sender: FDA-Public Use
  Company Number: JP-ASTRAZENECA-2008AP05130

PATIENT
  Age: 59 Year
  Sex: Female

DRUGS (1)
  1. XYLOCAINE VISCOUS [Suspect]
     Dosage: DOSE UNKOWN
     Route: 065

REACTIONS (1)
  - ANAPHYLACTIC SHOCK [None]
